FAERS Safety Report 8458788-9 (Version None)
Quarter: 2012Q2

REPORT INFORMATION
  Report Type: 
  Country: None (occurrence: None)
  Receive Date: 20120622
  Receipt Date: 20120613
  Transmission Date: 20120825
  Serious: Yes (Hospitalization, Other)
  Sender: FDA-Public Use
  Company Number: US-BAYER-2012-019881

PATIENT
  Age: 24 Year
  Sex: Female

DRUGS (8)
  1. MAGNESIUM SULFATE [Concomitant]
     Indication: GASTRITIS
  2. DROSPIRENONE AND ETHINYL ESTRADIOL [Suspect]
     Dosage: UNK
     Dates: start: 20061206, end: 20091001
  3. NEXIUM [Concomitant]
  4. IBUPROFEN [Concomitant]
     Dosage: 800 MG, UNK
  5. CELEBREX [Concomitant]
  6. YASMIN [Suspect]
     Dosage: UNK
     Dates: start: 20061206, end: 20091001
  7. YAZ [Suspect]
     Dosage: UNK
     Dates: start: 20061206, end: 20091001
  8. HYDROCODONE BITARTRATE AND ACETAMINOPHEN [Concomitant]
     Dosage: 5MG/500MG

REACTIONS (9)
  - CHOLECYSTITIS CHRONIC [None]
  - INJURY [None]
  - LIVER FUNCTION TEST ABNORMAL [None]
  - GASTROOESOPHAGEAL REFLUX DISEASE [None]
  - BLOOD CHOLESTEROL INCREASED [None]
  - CHOLECYSTECTOMY [None]
  - WEIGHT INCREASED [None]
  - PAIN [None]
  - GASTRITIS [None]
